FAERS Safety Report 4936130-5 (Version None)
Quarter: 2006Q1

REPORT INFORMATION
  Report Type: 
  Country: None (occurrence: None)
  Receive Date: 20060307
  Receipt Date: 20051103
  Transmission Date: 20060701
  Serious: No
  Sender: FDA-Public Use
  Company Number: US-GLAXOSMITHKLINE-A0580787A

PATIENT
  Age: 66 Year
  Sex: Female

DRUGS (2)
  1. REQUIP [Suspect]
     Indication: RESTLESS LEGS SYNDROME
     Dosage: .25MG PER DAY
     Route: 048
     Dates: start: 20051027
  2. NORVASC [Concomitant]

REACTIONS (9)
  - ANGER [None]
  - APATHY [None]
  - CHEST DISCOMFORT [None]
  - INSOMNIA [None]
  - MUSCLE SPASMS [None]
  - MUSCLE TWITCHING [None]
  - NAUSEA [None]
  - PAIN IN EXTREMITY [None]
  - STOMACH DISCOMFORT [None]
